FAERS Safety Report 14273295 (Version 6)
Quarter: 2018Q1

REPORT INFORMATION
  Report Type: Spontaneous
  Country: US (occurrence: US)
  Receive Date: 20171211
  Receipt Date: 20180209
  Transmission Date: 20180508
  Serious: Yes (Hospitalization, Other)
  Sender: FDA-Public Use
  Company Number: US-IMPAX LABORATORIES, INC-2017-IPXL-03057

PATIENT
  Age: 72 Year
  Sex: Female
  Weight: 59 kg

DRUGS (7)
  1. SYNTHROID [Concomitant]
     Active Substance: LEVOTHYROXINE SODIUM
     Indication: HYPOTHYROIDISM
     Dosage: UNK
     Route: 065
  2. RYTARY [Suspect]
     Active Substance: CARBIDOPA\LEVODOPA
     Dosage: RYTARY DOSE CUT IN HALF, UNK
     Route: 048
     Dates: start: 2017
  3. RYTARY [Suspect]
     Active Substance: CARBIDOPA\LEVODOPA
     Dosage: 23.75 MG /95 MG, 4 CAPS 3 TIMES DAILY
     Route: 048
     Dates: start: 2017
  4. REQUIP [Concomitant]
     Active Substance: ROPINIROLE HYDROCHLORIDE
     Indication: RESTLESS LEGS SYNDROME
     Dosage: UNK
     Route: 065
  5. MELOXICAM. [Concomitant]
     Active Substance: MELOXICAM
     Indication: PRODUCT USED FOR UNKNOWN INDICATION
     Dosage: UNK
     Route: 065
  6. ARICEPT [Concomitant]
     Active Substance: DONEPEZIL HYDROCHLORIDE
     Indication: DEMENTIA ALZHEIMER^S TYPE
     Dosage: UNK
     Route: 065
  7. RYTARY [Suspect]
     Active Substance: CARBIDOPA\LEVODOPA
     Indication: PARKINSON^S DISEASE
     Dosage: 23.75 MG /95 MG, 4 CAPS IN THE MORNING; 3 CAPS AT 11 AM; 4 CAPS AT 4 PM; 1 CAPSULE AT BEDTIME
     Route: 048
     Dates: start: 201707, end: 2017

REACTIONS (12)
  - Panic attack [Unknown]
  - Therapeutic response shortened [Unknown]
  - Respiratory disorder [Unknown]
  - Dyskinesia [Unknown]
  - Urinary tract infection [Recovered/Resolved]
  - Blood glucose decreased [Unknown]
  - Myocardial infarction [Unknown]
  - Influenza virus test positive [Unknown]
  - Incorrect route of drug administration [Unknown]
  - Drug dose omission [Recovered/Resolved]
  - Syncope [Recovered/Resolved]
  - Weight decreased [Unknown]

NARRATIVE: CASE EVENT DATE: 201711
